FAERS Safety Report 8257023-4 (Version None)
Quarter: 2012Q2

REPORT INFORMATION
  Report Type: 
  Country: None (occurrence: None)
  Receive Date: 20120403
  Receipt Date: 20120202
  Transmission Date: 20120825
  Serious: Yes (Other)
  Sender: FDA-Public Use
  Company Number: US-GLAXOSMITHKLINE-A0965732A

PATIENT
  Age: 73 Year
  Sex: Female
  Weight: 68 kg

DRUGS (2)
  1. VOTRIENT [Suspect]
     Indication: RENAL CANCER
     Dosage: 400MG PER DAY
     Route: 048
     Dates: start: 20110801, end: 20111118
  2. VOTRIENT [Suspect]
     Dosage: 600MG PER DAY
     Route: 048
     Dates: start: 20110701

REACTIONS (7)
  - FALL [None]
  - HYPOACUSIS [None]
  - EAR DISCOMFORT [None]
  - INTERVERTEBRAL DISC DEGENERATION [None]
  - CEREBRAL ATROPHY [None]
  - OSTEOARTHRITIS [None]
  - HAEMATOMA [None]
